FAERS Safety Report 8524197-7 (Version None)
Quarter: 2012Q3

REPORT INFORMATION
  Report Type: 
  Country: None (occurrence: None)
  Receive Date: 20120716
  Receipt Date: 20120716
  Transmission Date: 20120928
  Serious: Yes (Life-Threatening, Disabling, Other)
  Sender: FDA-Public Use
  Company Number: None

PATIENT
  Age: 69 Year
  Sex: Male
  Weight: 81.6475 kg

DRUGS (2)
  1. ZOCOR STATIN [Concomitant]
  2. ZOCOR [Suspect]
     Indication: BLOOD CHOLESTEROL INCREASED
     Dosage: 40 + 80 MG DAILY PO
     Route: 048
     Dates: start: 19870327, end: 20111215

REACTIONS (5)
  - BALANCE DISORDER [None]
  - ASTHENIA [None]
  - TREMOR [None]
  - MUSCLE INJURY [None]
  - ROTATOR CUFF SYNDROME [None]
